FAERS Safety Report 20874517 (Version 2)
Quarter: 2022Q3

REPORT INFORMATION
  Report Type: Report from Study
  Country: DE (occurrence: DE)
  Receive Date: 20220525
  Receipt Date: 20220912
  Transmission Date: 20221027
  Serious: Yes (Hospitalization, Other)
  Sender: FDA-Public Use
  Company Number: DE-IMMUNOCORE, LTD-2022-IMC-000804

PATIENT

DRUGS (2)
  1. TEBENTAFUSP [Suspect]
     Active Substance: TEBENTAFUSP
     Indication: Uveal melanoma
     Dosage: 20 MICROGRAM, SINGLE, FIRST ADMIN
     Dates: start: 20220402, end: 20220402
  2. TEBENTAFUSP [Suspect]
     Active Substance: TEBENTAFUSP
     Dosage: 30 MICROGRAM, SINGLE, SECOND ADMIN
     Dates: start: 20220413, end: 20220413

REACTIONS (3)
  - Hypertension [Not Recovered/Not Resolved]
  - Acute kidney injury [Unknown]
  - Tumour lysis syndrome [Recovered/Resolved]

NARRATIVE: CASE EVENT DATE: 20220413
